FAERS Safety Report 25289868 (Version 1)
Quarter: 2025Q2

REPORT INFORMATION
  Report Type: Spontaneous
  Country: CN (occurrence: CN)
  Receive Date: 20250509
  Receipt Date: 20250509
  Transmission Date: 20250716
  Serious: Yes (Other)
  Sender: ALEXION PHARMACEUTICALS
  Company Number: CN-ASTRAZENECA-202505CHN003575CN

PATIENT
  Age: 69 Year
  Weight: 80 kg

DRUGS (1)
  1. DAPAGLIFLOZIN [Suspect]
     Active Substance: DAPAGLIFLOZIN
     Indication: Hypoglycaemia
     Dosage: 10 MILLIGRAM, QD

REACTIONS (4)
  - Vulvovaginal pruritus [Recovering/Resolving]
  - Vulvitis [Recovering/Resolving]
  - Vaginal infection [Recovering/Resolving]
  - Urine analysis abnormal [Recovering/Resolving]
